FAERS Safety Report 19070921 (Version 1)
Quarter: 2021Q1

REPORT INFORMATION
  Report Type: Other
  Country: GB (occurrence: GB)
  Receive Date: 20210330
  Receipt Date: 20210330
  Transmission Date: 20210420
  Serious: Yes (Life-Threatening)
  Sender: FDA-Public Use
  Company Number: GB-CELLTRION INC.-2021GB004027

PATIENT

DRUGS (4)
  1. REMSIMA [Suspect]
     Active Substance: INFLIXIMAB
     Indication: CROHN^S DISEASE
     Dosage: 350 MG
     Route: 042
     Dates: start: 20080715, end: 20200814
  2. REMICADE [Suspect]
     Active Substance: INFLIXIMAB
     Indication: CROHN^S DISEASE
     Dosage: 350 MG
     Route: 042
     Dates: start: 20080715, end: 20200814
  3. AZATHIOPRINE. [Suspect]
     Active Substance: AZATHIOPRINE
     Indication: CROHN^S DISEASE
     Dosage: 100 MG
     Route: 048
     Dates: start: 20050719, end: 20201002
  4. ZESSLY [Suspect]
     Active Substance: INFLIXIMAB
     Indication: CROHN^S DISEASE
     Dosage: 350 MG
     Route: 042
     Dates: start: 20080715, end: 20200814

REACTIONS (3)
  - Mediastinal mass [Unknown]
  - Overdose [Unknown]
  - Chloroma [Unknown]

NARRATIVE: CASE EVENT DATE: 20200907
